FAERS Safety Report 19584170 (Version 1)
Quarter: 2021Q3

REPORT INFORMATION
  Report Type: Spontaneous
  Country: CA (occurrence: CA)
  Receive Date: 20210720
  Receipt Date: 20210720
  Transmission Date: 20211014
  Serious: Yes (Hospitalization, Other)
  Sender: FDA-Public Use
  Company Number: CA-BAXTER-2021BAX020250

PATIENT
  Sex: Male

DRUGS (4)
  1. DIANEAL W/ DEXTROSE 2.5% [Suspect]
     Active Substance: CALCIUM CHLORIDE\DEXTROSE\MAGNESIUM CHLORIDE\SODIUM CHLORIDE\SODIUM LACTATE
     Indication: PERITONEAL DIALYSIS
     Dosage: VIA APD, STARTED IN MAR2021 OR APR2021 AND DISCONTINUED ON AN UNKNOWN DATE IN HOSPITALIZATION (2021)
     Route: 033
     Dates: start: 2021, end: 2021
  2. EXTRANEAL [Suspect]
     Active Substance: CALCIUM CHLORIDE\ICODEXTRIN\MAGNESIUM CHLORIDE\SODIUM CHLORIDE\SODIUM LACTATE
     Indication: PERITONEAL DIALYSIS
     Dosage: VIA CAPD, STARTED IN BEGINNING OF 2021 AND DISCONTINUED IN MAR2021 OR APR2021
     Route: 033
     Dates: start: 2021, end: 2021
  3. DIANEAL W/ DEXTROSE 2.5% [Suspect]
     Active Substance: CALCIUM CHLORIDE\DEXTROSE\MAGNESIUM CHLORIDE\SODIUM CHLORIDE\SODIUM LACTATE
     Indication: PERITONEAL DIALYSIS
     Dosage: VIA CAPD, STARTED IN BEGINNING OF 2021 AND DISCONTINUED IN MAR2021 OR APR2021
     Route: 033
     Dates: start: 2021, end: 2021
  4. EXTRANEAL [Suspect]
     Active Substance: CALCIUM CHLORIDE\ICODEXTRIN\MAGNESIUM CHLORIDE\SODIUM CHLORIDE\SODIUM LACTATE
     Indication: PERITONEAL DIALYSIS
     Dosage: VIA APD, STARTED IN MAR2021 OR APR2021 AND DISCONTINUED ON AN UNKNOWN DATE IN HOSPITALIZATION (2021)
     Route: 033
     Dates: start: 2021, end: 2021

REACTIONS (10)
  - Anxiety [Not Recovered/Not Resolved]
  - Hypoaesthesia [Not Recovered/Not Resolved]
  - Neck pain [Unknown]
  - Gait disturbance [Unknown]
  - Nervous system disorder [Not Recovered/Not Resolved]
  - Blood glucose decreased [Unknown]
  - Peritonitis [Recovering/Resolving]
  - Arthralgia [Unknown]
  - Claustrophobia [Unknown]
  - Dyspnoea [Not Recovered/Not Resolved]

NARRATIVE: CASE EVENT DATE: 2021
